FAERS Safety Report 8313065-1 (Version None)
Quarter: 2012Q2

REPORT INFORMATION
  Report Type: 
  Country: None (occurrence: None)
  Receive Date: 20120426
  Receipt Date: 20120420
  Transmission Date: 20120825
  Serious: Yes (Other)
  Sender: FDA-Public Use
  Company Number: US-PFIZER INC-2012026691

PATIENT
  Sex: Female
  Weight: 72.6 kg

DRUGS (28)
  1. LIDODERM [Concomitant]
     Dosage: 1 DF, 2X/DAY
  2. BUPROPION [Concomitant]
     Dosage: 100 MG, 2X/DAY
  3. FISH OIL [Concomitant]
     Dosage: 1000 MG, 3X/DAY
  4. GABAPENTIN [Concomitant]
     Dosage: 300 MG, 3X/DAY
  5. GABAPENTIN [Concomitant]
     Dosage: 300 MG, 1X/DAY
  6. VICODIN [Concomitant]
     Dosage: UNK
  7. BACLOFEN [Concomitant]
     Dosage: 10 MG, 3X/DAY
  8. HYDROCODONE BITARTRATE + ACETAMINOPHEN [Concomitant]
     Dosage: (5-500 MG TABS, AS DIRECTED, TAKES 2 TABS Q4H PRN)
  9. MIRTAZAPINE [Concomitant]
     Dosage: 15 MG, 1X/DAY
  10. KEPPRA [Concomitant]
     Dosage: 500 MG, 2X/DAY
  11. TIZANIDINE [Concomitant]
     Dosage: 2 MG, 3X/DAY
  12. LYRICA [Suspect]
     Indication: MULTIPLE SCLEROSIS
     Dosage: 100 MG, 3X/DAY
     Route: 048
     Dates: start: 20111207
  13. OMEPRAZOLE [Concomitant]
     Dosage: 20 MG, 2X/DAY
  14. FERROUS SULFATE [Concomitant]
     Dosage: 325 MG, 1X/DAY (325 (65 FE) MG TABS)
  15. LEVETIRACETAM [Concomitant]
     Dosage: 500 MG, 2X/DAY
  16. REBIF [Concomitant]
     Dosage: UNK
  17. MACROGOL [Concomitant]
     Dosage: UNK
  18. ARICEPT [Concomitant]
     Dosage: 10 MG, 1X/DAY
  19. FLUOXETINE HYDROCHLORIDE [Concomitant]
     Dosage: 20 MG, 1X/DAY
  20. ACETYLSALICYLIC ACID [Concomitant]
     Dosage: 81 MG, 1X/DAY
  21. VITAMIN D [Concomitant]
     Dosage: 1000 UNIT, 3X/DAY
  22. SULFACETAMIDE SODIUM [Concomitant]
     Dosage: (10 % SOLUTION AS DIRECTED)
  23. DITROPAN XL [Concomitant]
     Dosage: 5 MG, 2X/DAY
  24. GABAPENTIN [Concomitant]
     Dosage: 300 MG (AS DIRECTED)
  25. GABAPENTIN [Concomitant]
     Dosage: 300 MG, 2X/DAY
  26. PROAIR HFA [Concomitant]
     Dosage: (AS DIRECTED, 2 PUFFS Q4N PRN)
  27. SEBULEX [Concomitant]
     Dosage: (AS DIRECTED, AT LEAST 2 TIMES A WEEK)
  28. WELLBUTRIN [Concomitant]
     Dosage: 150 MG, 2X/DAY

REACTIONS (7)
  - ATAXIA [None]
  - HYPERHIDROSIS [None]
  - SLEEP DISORDER [None]
  - DRUG INEFFECTIVE [None]
  - DYSURIA [None]
  - INTERVERTEBRAL DISC PROTRUSION [None]
  - POLYDIPSIA [None]
